FAERS Safety Report 5549828-5 (Version None)
Quarter: 2007Q4

REPORT INFORMATION
  Report Type: 
  Country: None (occurrence: None)
  Receive Date: 20071212
  Receipt Date: 20071204
  Transmission Date: 20080405
  Serious: Yes (Death, Life-Threatening)
  Sender: FDA-Public Use
  Company Number: CH-WYE-G00726707

PATIENT

DRUGS (3)
  1. EFFEXOR [Suspect]
     Dosage: 150 + 300 MG PER DAY
     Route: 048
     Dates: end: 20041005
  2. SURMONTIL [Suspect]
     Route: 048
     Dates: end: 20041005
  3. SEROQUEL [Suspect]
     Route: 048
     Dates: end: 20041005

REACTIONS (2)
  - TACHYCARDIA [None]
  - VENTRICULAR FIBRILLATION [None]
